FAERS Safety Report 10565597 (Version 2)
Quarter: 2014Q4

REPORT INFORMATION
  Report Type: Spontaneous
  Country: US (occurrence: US)
  Receive Date: 20141105
  Receipt Date: 20141120
  Transmission Date: 20150529
  Serious: Yes (Hospitalization, Other)
  Sender: FDA-Public Use
  Company Number: US-GLAXOSMITHKLINE-US2014GSK016661

PATIENT
  Age: 48 Year
  Sex: Female
  Weight: 57.6 kg

DRUGS (17)
  1. LORAZEPAM. [Concomitant]
     Active Substance: LORAZEPAM
  2. ZOFRAN [Concomitant]
     Active Substance: ONDANSETRON HYDROCHLORIDE
  3. PROCHLORPERAZINE. [Concomitant]
     Active Substance: PROCHLORPERAZINE
  4. VOTRIENT [Suspect]
     Active Substance: PAZOPANIB HYDROCHLORIDE
     Indication: BREAST CANCER
     Dosage: 400 MG, QD FOR 2 WEEKS
     Dates: start: 20141015, end: 20141022
  5. MORPHINE [Concomitant]
     Active Substance: MORPHINE
  6. OXYCONTIN [Concomitant]
     Active Substance: OXYCODONE HYDROCHLORIDE
  7. VOTRIENT [Suspect]
     Active Substance: PAZOPANIB HYDROCHLORIDE
     Dosage: 400 MG, QD
     Route: 048
     Dates: start: 20141028
  8. METOPROLOL [Concomitant]
     Active Substance: METOPROLOL
  9. LACTULOSE. [Concomitant]
     Active Substance: LACTULOSE
  10. NORVASC [Concomitant]
     Active Substance: AMLODIPINE BESYLATE
  11. DEXAMETHASONE. [Concomitant]
     Active Substance: DEXAMETHASONE
  12. HEART MEDICATION [Suspect]
     Active Substance: UNSPECIFIED INGREDIENT
     Indication: PRODUCT USED FOR UNKNOWN INDICATION
  13. MVI [Concomitant]
     Active Substance: VITAMINS
  14. POTASSIUM [Concomitant]
     Active Substance: POTASSIUM
  15. HYDROMORPHONE [Concomitant]
     Active Substance: HYDROMORPHONE
  16. MOM (NOS) [Concomitant]
  17. METOCLOPRAMIDE. [Concomitant]
     Active Substance: METOCLOPRAMIDE

REACTIONS (2)
  - Hospitalisation [Unknown]
  - Heart rate irregular [Recovering/Resolving]

NARRATIVE: CASE EVENT DATE: 20141022
